FAERS Safety Report 11570330 (Version 1)
Quarter: 2015Q3

REPORT INFORMATION
  Report Type: Spontaneous
  Country: CN (occurrence: CN)
  Receive Date: 20150929
  Receipt Date: 20150929
  Transmission Date: 20151125
  Serious: Yes (Other)
  Sender: FDA-Public Use
  Company Number: CN-JNJFOC-20150923651

PATIENT
  Age: 32 Year
  Sex: Male

DRUGS (1)
  1. KETOCONAZOLE. [Suspect]
     Active Substance: KETOCONAZOLE
     Indication: TINEA PEDIS
     Route: 061
     Dates: start: 20140603, end: 20140616

REACTIONS (9)
  - Abdominal pain [Unknown]
  - Nausea [Unknown]
  - Decreased appetite [Unknown]
  - Hepatic enzyme increased [Unknown]
  - Angioedema [Unknown]
  - Constipation [Recovering/Resolving]
  - Headache [Unknown]
  - Menstrual disorder [Unknown]
  - Dizziness [Unknown]

NARRATIVE: CASE EVENT DATE: 20140611
